FAERS Safety Report 6532131-4 (Version None)
Quarter: 2010Q1

REPORT INFORMATION
  Report Type: 
  Country: None (occurrence: None)
  Receive Date: 20100108
  Receipt Date: 20100107
  Transmission Date: 20100710
  Serious: Yes (Hospitalization)
  Sender: FDA-Public Use
  Company Number: GB-PERRIGO-10GB006101

PATIENT
  Age: 80 Year
  Sex: Female

DRUGS (1)
  1. EXTRA POWER PAIN RELIEVER 12063/0009 [Suspect]
     Indication: BACK PAIN
     Dosage: UNK
     Route: 048
     Dates: start: 20081201, end: 20091229

REACTIONS (1)
  - GASTROINTESTINAL HAEMORRHAGE [None]
